FAERS Safety Report 4924642-X (Version None)
Quarter: 2006Q1

REPORT INFORMATION
  Report Type: 
  Country: None (occurrence: None)
  Receive Date: 20060127
  Receipt Date: 20051020
  Transmission Date: 20060701
  Serious: Yes (Other)
  Sender: FDA-Public Use
  Company Number: 2005145411

PATIENT

DRUGS (1)
  1. PREGABALIN (PREGABALIN) [Suspect]
     Indication: ILL-DEFINED DISORDER

REACTIONS (1)
  - DEPRESSION [None]
